FAERS Safety Report 9913003 (Version 1)
Quarter: 2014Q1

REPORT INFORMATION
  Report Type: Spontaneous
  Country: FR (occurrence: FR)
  Receive Date: 20140220
  Receipt Date: 20140220
  Transmission Date: 20141002
  Serious: Yes (Hospitalization)
  Sender: FDA-Public Use
  Company Number: FR-JNJFOC-20140208752

PATIENT
  Age: 78 Year
  Sex: Male

DRUGS (4)
  1. XARELTO [Suspect]
     Indication: PRODUCT USED FOR UNKNOWN INDICATION
     Route: 048
     Dates: start: 20140120
  2. KARDEGIC [Concomitant]
     Route: 048
  3. ESOMEPRAZOLE [Concomitant]
     Route: 048
  4. FORTIMEL [Concomitant]
     Route: 048

REACTIONS (1)
  - Rash maculo-papular [Recovering/Resolving]
